FAERS Safety Report 15825675 (Version 1)
Quarter: 2019Q1

REPORT INFORMATION
  Report Type: Report from Study
  Country: US (occurrence: US)
  Receive Date: 20190115
  Receipt Date: 20190115
  Transmission Date: 20190417
  Serious: Yes (Hospitalization, Other)
  Sender: FDA-Public Use
  Company Number: US-SA-2019SA008667

PATIENT
  Age: 53 Year
  Sex: Male

DRUGS (4)
  1. WARFARIN [Concomitant]
     Active Substance: WARFARIN
     Dosage: UNK
  2. ENOXAPARIN SODIUM. [Suspect]
     Active Substance: ENOXAPARIN SODIUM
     Indication: CARDIAC DISORDER
  3. ENOXAPARIN SODIUM. [Suspect]
     Active Substance: ENOXAPARIN SODIUM
     Indication: DEEP VEIN THROMBOSIS
     Dosage: UNK
     Dates: start: 201706
  4. ENOXAPARIN SODIUM. [Suspect]
     Active Substance: ENOXAPARIN SODIUM
     Indication: PULMONARY EMBOLISM
     Dosage: 100 MG, BID
     Dates: start: 201811

REACTIONS (10)
  - Renal cancer [Unknown]
  - Hepatic cirrhosis [Recovered/Resolved]
  - Chromaturia [Recovered/Resolved]
  - Speech disorder [Recovered/Resolved]
  - Neoplasm [Not Recovered/Not Resolved]
  - Jaundice [Recovered/Resolved]
  - Eye colour change [Recovered/Resolved]
  - Blood test abnormal [Recovered/Resolved]
  - Haemorrhage [Recovered/Resolved]
  - Oedema [Recovered/Resolved]

NARRATIVE: CASE EVENT DATE: 201811
